FAERS Safety Report 22121548 (Version 2)
Quarter: 2023Q1

REPORT INFORMATION
  Report Type: Other
  Country: AT (occurrence: AT)
  Receive Date: 20230321
  Receipt Date: 20230328
  Transmission Date: 20230417
  Serious: No
  Sender: FDA-Public Use
  Company Number: AT-DSJP-DSE-2023-104961

PATIENT
  Age: 82 Year
  Sex: Female

DRUGS (7)
  1. RITUXIMAB [Suspect]
     Active Substance: RITUXIMAB
     Indication: Immune thrombocytopenia
     Dosage: 375 MG/M2, ONCE EVERY 1 WK
     Route: 041
     Dates: start: 2021
  2. DARATUMUMAB [Concomitant]
     Active Substance: DARATUMUMAB
     Dates: start: 202108
  3. PREDNISOLONE [Concomitant]
     Active Substance: PREDNISOLONE
  4. PLATELETS [Concomitant]
     Active Substance: HUMAN PLATELET, ALLOGENIC
  5. DEXAMETHASONE [Concomitant]
     Active Substance: DEXAMETHASONE
  6. ELTROMBOPAG [Concomitant]
     Active Substance: ELTROMBOPAG
  7. EDOXABAN [Concomitant]
     Active Substance: EDOXABAN

REACTIONS (2)
  - Off label use [Unknown]
  - No adverse event [Unknown]
